FAERS Safety Report 13034663 (Version 1)
Quarter: 2016Q4

REPORT INFORMATION
  Report Type: Spontaneous
  Country: US (occurrence: US)
  Receive Date: 20161216
  Receipt Date: 20161216
  Transmission Date: 20170207
  Serious: No
  Sender: FDA-Public Use
  Company Number: None

PATIENT
  Age: 66 Year
  Sex: Female

DRUGS (1)
  1. CERDELGA [Suspect]
     Active Substance: ELIGLUSTAT
     Indication: MALAISE
     Route: 048
     Dates: start: 201503

REACTIONS (4)
  - Therapy cessation [None]
  - Asthenia [None]
  - Limb discomfort [None]
  - Hip surgery [None]

NARRATIVE: CASE EVENT DATE: 201607
